FAERS Safety Report 8842879 (Version 2)
Quarter: 2012Q4

REPORT INFORMATION
  Report Type: 
  Country: PL (occurrence: PL)
  Receive Date: 20121016
  Receipt Date: 20121106
  Transmission Date: 20130627
  Serious: Yes (Other)
  Sender: FDA-Public Use
  Company Number: PL-WATSON-2012-17422

PATIENT
  Age: 62 Year
  Sex: Male

DRUGS (2)
  1. PREDNISONE (UNKNOWN) [Suspect]
     Indication: IDIOPATHIC THROMBOCYTOPENIC PURPURA
     Dosage: UNK
     Route: 065
  2. DEXAMETHASONE [Suspect]
     Indication: IDIOPATHIC THROMBOCYTOPENIC PURPURA
     Dosage: UNK
     Route: 065

REACTIONS (3)
  - Adams-Stokes syndrome [Recovered/Resolved]
  - Bradycardia [Recovered/Resolved]
  - Hyperglycaemia [Recovered/Resolved]
